FAERS Safety Report 5206538-1 (Version None)
Quarter: 2007Q1

REPORT INFORMATION
  Report Type: 
  Country: None (occurrence: None)
  Receive Date: 20070109
  Receipt Date: 20070104
  Transmission Date: 20070707
  Serious: Yes (Other)
  Sender: FDA-Public Use
  Company Number: SPV1-2007-00031

PATIENT
  Age: 47 Year
  Sex: Female
  Weight: 58 kg

DRUGS (11)
  1. DAYTRANA [Suspect]
     Indication: ATTENTION DEFICIT/HYPERACTIVITY DISORDER
     Dosage: 30 MG, TRANSDERMAL
     Route: 062
     Dates: start: 20060901, end: 20061227
  2. ZYRTEC [Concomitant]
  3. MONOPRIL [Concomitant]
  4. THYROID TAB [Concomitant]
  5. IMURAN /00001501/ (AZATHIOPRINE) [Concomitant]
  6. PLAQUENIL /00072601/ (HYDROCHLOROQUINE) [Concomitant]
  7. ZOLOFT [Concomitant]
  8. WELLBUTRIN /00700501/ (BUPROPION) [Concomitant]
  9. LITHIUM CARBONATE [Concomitant]
  10. KLONOPIN [Concomitant]
  11. NEURONTIN [Concomitant]

REACTIONS (4)
  - APPLICATION SITE ERYTHEMA [None]
  - APPLICATION SITE URTICARIA [None]
  - CHEST DISCOMFORT [None]
  - URTICARIA GENERALISED [None]
